FAERS Safety Report 4470806-1 (Version None)
Quarter: 2004Q4

REPORT INFORMATION
  Report Type: 
  Country: None (occurrence: None)
  Receive Date: 20041006
  Receipt Date: 20040922
  Transmission Date: 20050328
  Serious: Yes (Hospitalization)
  Sender: FDA-Public Use
  Company Number: SGB1-2004-00235

PATIENT
  Age: 84 Year
  Sex: Male

DRUGS (2)
  1. MIDODRINE(MIDODRINE) TABLET [Suspect]
     Indication: HYPOTENSION
     Dosage: ORAL
     Route: 048
  2. RISUMIC (AMEZINIUM METILSULFATE) [Concomitant]

REACTIONS (1)
  - CEREBRAL HAEMORRHAGE [None]
